FAERS Safety Report 4744178-9 (Version None)
Quarter: 2005Q3

REPORT INFORMATION
  Report Type: 
  Country: None (occurrence: None)
  Receive Date: 20050809
  Receipt Date: 20050729
  Transmission Date: 20060218
  Serious: Yes (Hospitalization, Other)
  Sender: FDA-Public Use
  Company Number: KII-2005-0017787

PATIENT
  Age: 17 Year
  Sex: Male

DRUGS (7)
  1. MORPHINE SULFATE [Suspect]
     Dosage: ORAL
     Route: 048
  2. ACETAMINOPHEN AND HYDROCODONE BITARTRATE [Suspect]
     Dosage: SEE TEXT, ORAL
     Route: 048
  3. AMITRIPTYLINE HCL [Suspect]
     Dosage: SEE TEXT, ORAL
     Route: 048
  4. LOVASTATIN [Suspect]
     Dosage: SEE TEXT, ORAL
     Route: 048
  5. CETYLSALICYLIC ACID(ACETYLSALICYLIC ACID) [Suspect]
     Dosage: SEE TEXT, ORAL
     Route: 048
  6. ETHANOL (ETHANOL) [Suspect]
     Dosage: ORAL
     Route: 048
  7. TETRAHYDROCANNABINOL (TETRAHYDROCANNABINOL) [Suspect]

REACTIONS (18)
  - ALANINE AMINOTRANSFERASE INCREASED [None]
  - ALCOHOL POISONING [None]
  - ASPARTATE AMINOTRANSFERASE INCREASED [None]
  - BLOOD GLUCOSE ABNORMAL [None]
  - BLOOD GLUCOSE INCREASED [None]
  - ERYTHEMA [None]
  - HEPATIC ENZYME INCREASED [None]
  - HYPERHIDROSIS [None]
  - INTENTIONAL MISUSE [None]
  - MENTAL DISORDER [None]
  - MULTIPLE DRUG OVERDOSE [None]
  - MYDRIASIS [None]
  - NAUSEA [None]
  - POLYSUBSTANCE ABUSE [None]
  - PRURITUS [None]
  - SELF-MEDICATION [None]
  - SINUS TACHYCARDIA [None]
  - VOMITING [None]
